FAERS Safety Report 7935743-6 (Version None)
Quarter: 2011Q4

REPORT INFORMATION
  Report Type: 
  Country: None (occurrence: None)
  Receive Date: 20111123
  Receipt Date: 20111111
  Transmission Date: 20120403
  Serious: Yes (Other)
  Sender: FDA-Public Use
  Company Number: US-JNJFOC-20111105281

PATIENT
  Sex: Female
  Weight: 62.6 kg

DRUGS (7)
  1. IBUPROFEN [Concomitant]
     Indication: PAIN
     Route: 048
     Dates: start: 20100101
  2. REMICADE [Concomitant]
     Indication: ANKYLOSING SPONDYLITIS
     Route: 042
     Dates: start: 20111104
  3. IMITREX [Concomitant]
     Indication: MIGRAINE
     Dosage: AS NEEDED
     Route: 048
     Dates: start: 20090101
  4. PROTONIX [Concomitant]
     Indication: GASTRIC DISORDER
     Dosage: AS NEEDED
     Route: 048
     Dates: start: 20100101
  5. EFFEXOR [Concomitant]
     Indication: DEPRESSION
     Route: 048
     Dates: start: 20110101
  6. EFFEXOR [Concomitant]
     Indication: ANXIETY
     Route: 048
     Dates: start: 20110101
  7. TOPIRAMATE [Suspect]
     Indication: PAIN PROPHYLAXIS
     Route: 048
     Dates: start: 20090101

REACTIONS (9)
  - EYE DISCHARGE [None]
  - PYREXIA [None]
  - PAIN [None]
  - RETINAL OEDEMA [None]
  - MOOD SWINGS [None]
  - ABNORMAL BEHAVIOUR [None]
  - VOMITING [None]
  - HEADACHE [None]
  - ANKYLOSING SPONDYLITIS [None]
